FAERS Safety Report 25886568 (Version 2)
Quarter: 2025Q4

REPORT INFORMATION
  Report Type: Spontaneous
  Country: US (occurrence: US)
  Receive Date: 20251006
  Receipt Date: 20251113
  Transmission Date: 20260117
  Serious: No
  Sender: INSUD PHARMA
  Company Number: US-INSUD PHARMA-2509US07913

PATIENT

DRUGS (1)
  1. SLYND [Suspect]
     Active Substance: DROSPIRENONE
     Indication: Uterine leiomyoma
     Dosage: ONE DAILY
     Route: 048
     Dates: start: 202503, end: 202510

REACTIONS (3)
  - Intermenstrual bleeding [Recovered/Resolved]
  - Amenorrhoea [Recovered/Resolved]
  - Product prescribing issue [Unknown]

NARRATIVE: CASE EVENT DATE: 20250301
